FAERS Safety Report 11515755 (Version 2)
Quarter: 2020Q3

REPORT INFORMATION
  Report Type: Spontaneous
  Country: US (occurrence: US)
  Receive Date: 20150916
  Receipt Date: 20200727
  Transmission Date: 20201102
  Serious: No
  Sender: FDA-Public Use
  Company Number: US-BAUSCH-BL-2015-003355

PATIENT
  Weight: 67.19 kg

DRUGS (6)
  1. TROPICAMIDE OPHTHALMIC SOLUTION USP 0.5% [Suspect]
     Active Substance: TROPICAMIDE
     Indication: OPHTHALMOLOGICAL EXAMINATION
     Route: 047
     Dates: start: 20150128, end: 20150128
  2. FLUORESCEIN SODIUM AND BENOXINATE HYDROCHLORIDE OPHT SOLN 0.25%/0.4% [Suspect]
     Active Substance: BENOXINATE HYDROCHLORIDE\FLUORESCEIN SODIUM
     Indication: OPHTHALMOLOGICAL EXAMINATION
     Route: 047
     Dates: start: 20150128, end: 20150128
  3. ALBUTEROL. [Concomitant]
     Active Substance: ALBUTEROL
     Indication: PRODUCT USED FOR UNKNOWN INDICATION
  4. LEVOTHYROXINE. [Concomitant]
     Active Substance: LEVOTHYROXINE
     Indication: PRODUCT USED FOR UNKNOWN INDICATION
  5. PHENYLEPHRINE HYDROCHLORIDE OPHTHALMIC [Suspect]
     Active Substance: PHENYLEPHRINE HYDROCHLORIDE
     Indication: OPHTHALMOLOGICAL EXAMINATION
     Route: 047
     Dates: start: 20150128, end: 20150128
  6. RESTASIS [Concomitant]
     Active Substance: CYCLOSPORINE
     Indication: PRODUCT USED FOR UNKNOWN INDICATION

REACTIONS (7)
  - Pruritus [Recovered/Resolved]
  - Eye discharge [Unknown]
  - Erythema [Not Recovered/Not Resolved]
  - Lymphadenopathy [Unknown]
  - Eyelid thickening [Unknown]
  - Dermatitis contact [Unknown]
  - Pain [Not Recovered/Not Resolved]

NARRATIVE: CASE EVENT DATE: 2015
